FAERS Safety Report 24812730 (Version 1)
Quarter: 2025Q1

REPORT INFORMATION
  Report Type: Report from Study
  Country: US (occurrence: US)
  Receive Date: 20250107
  Receipt Date: 20250107
  Transmission Date: 20250409
  Serious: Yes (Other)
  Sender: UCB
  Company Number: US-UCBSA-2024068295

PATIENT
  Sex: Female

DRUGS (1)
  1. CERTOLIZUMAB PEGOL [Suspect]
     Active Substance: CERTOLIZUMAB PEGOL
     Indication: Rheumatoid arthritis
     Dosage: UNK UNK, MONTHLY (QM)
     Dates: start: 202406

REACTIONS (3)
  - Rheumatoid arthritis [Unknown]
  - Osteoarthritis [Recovering/Resolving]
  - Drug ineffective [Unknown]
